FAERS Safety Report 10014079 (Version 1)
Quarter: 2014Q1

REPORT INFORMATION
  Report Type: Spontaneous
  Country: US (occurrence: US)
  Receive Date: 20140317
  Receipt Date: 20140317
  Transmission Date: 20141002
  Serious: No
  Sender: FDA-Public Use
  Company Number: US-BIOGENIDEC-2014BI021877

PATIENT
  Sex: Female

DRUGS (12)
  1. TYSABRI [Suspect]
     Indication: MULTIPLE SCLEROSIS
     Route: 042
     Dates: start: 20050111, end: 20050211
  2. TYSABRI [Suspect]
     Indication: MULTIPLE SCLEROSIS
     Route: 042
     Dates: start: 20071015, end: 20130923
  3. AVONEX [Concomitant]
     Indication: MULTIPLE SCLEROSIS
     Route: 030
  4. BETASERON [Concomitant]
     Indication: MULTIPLE SCLEROSIS
  5. COPAXONE [Concomitant]
     Indication: MULTIPLE SCLEROSIS
  6. REBIF [Concomitant]
     Indication: MULTIPLE SCLEROSIS
  7. NOVANTRONE [Concomitant]
     Indication: MULTIPLE SCLEROSIS
  8. SOLUMEDROL [Concomitant]
     Indication: MULTIPLE SCLEROSIS
  9. PREDNISONE [Concomitant]
     Indication: MULTIPLE SCLEROSIS
  10. HYDROCODONE-ACETAMINOPEN [Concomitant]
     Indication: PAIN
     Route: 048
  11. VESICARE [Concomitant]
     Route: 048
  12. ALPRAXOLAM [Concomitant]
     Route: 048

REACTIONS (9)
  - Paraesthesia [Unknown]
  - Muscular weakness [Unknown]
  - Urinary incontinence [Unknown]
  - Anxiety [Unknown]
  - Coordination abnormal [Unknown]
  - Balance disorder [Unknown]
  - Constipation [Unknown]
  - Dyspnoea [Unknown]
  - Fatigue [Unknown]
